FAERS Safety Report 7321002-1 (Version None)
Quarter: 2011Q1

REPORT INFORMATION
  Report Type: 
  Country: None (occurrence: None)
  Receive Date: 20110228
  Receipt Date: 20110218
  Transmission Date: 20110831
  Serious: Yes (Other)
  Sender: FDA-Public Use
  Company Number: PT-ROCHE-761886

PATIENT
  Sex: Female

DRUGS (1)
  1. HERCEPTIN [Suspect]
     Dosage: DRUG REPORTED AS: HERCEPTIN 150 MG POWDER FOR CONCENTRATE FOR SOLUTION FOR INFUSION.
     Route: 065

REACTIONS (1)
  - MULTIPLE SCLEROSIS [None]
